FAERS Safety Report 8076496-3 (Version None)
Quarter: 2011Q4

REPORT INFORMATION
  Report Type: 
  Country: None (occurrence: None)
  Receive Date: 20111221
  Receipt Date: 20110307
  Transmission Date: 20120403
  Serious: Yes (Death)
  Sender: FDA-Public Use
  Company Number: PHHY2011US14998

PATIENT
  Sex: Male
  Weight: 69 kg

DRUGS (4)
  1. SYNTHROID [Concomitant]
  2. ASPIRIN [Concomitant]
  3. EXJADE [Suspect]
     Indication: MYELOFIBROSIS
     Dosage: 1250 MG, QD, ORAL
     Route: 048
     Dates: start: 20100823
  4. PRILOSEC [Concomitant]

REACTIONS (1)
  - MYELODYSPLASTIC SYNDROME [None]
